FAERS Safety Report 6648223-5 (Version None)
Quarter: 2010Q1

REPORT INFORMATION
  Report Type: 
  Country: None (occurrence: None)
  Receive Date: 20100324
  Receipt Date: 20100318
  Transmission Date: 20100710
  Serious: Yes (Death)
  Sender: FDA-Public Use
  Company Number: US-CELGENEUS-163-21880-10031864

PATIENT
  Sex: Male

DRUGS (5)
  1. REVLIMID [Suspect]
     Indication: MULTIPLE MYELOMA
     Route: 048
     Dates: start: 20091201, end: 20100317
  2. REVLIMID [Suspect]
     Route: 048
     Dates: start: 20090901
  3. REVLIMID [Suspect]
     Dosage: 5MG-25MG
     Route: 048
     Dates: start: 20080901
  4. REVLIMID [Suspect]
     Route: 048
     Dates: start: 20070605
  5. REVLIMID [Suspect]
     Dosage: 10MG-15MG-25MG
     Route: 048
     Dates: start: 20060901

REACTIONS (1)
  - DEATH [None]
